FAERS Safety Report 4365744-9 (Version None)
Quarter: 2004Q2

REPORT INFORMATION
  Report Type: 
  Country: None (occurrence: None)
  Receive Date: 20040520
  Receipt Date: 20040510
  Transmission Date: 20050107
  Serious: Yes (Hospitalization)
  Sender: FDA-Public Use
  Company Number: 04P-020-0260452-00

PATIENT
  Age: 36 Year
  Sex: Female
  Weight: 80 kg

DRUGS (10)
  1. MERIDIA [Suspect]
     Indication: OBESITY
     Dosage: 15 MG, 1 IN 1 D, ORAL
     Route: 048
     Dates: start: 20031001
  2. CLONAZEPAM [Concomitant]
  3. FLUOXETINE [Concomitant]
  4. NORTRIPTYLINE HCL [Concomitant]
  5. NAPROXEN SODIUM [Concomitant]
  6. PROPRANOLOL HYDROCHLORIDE [Concomitant]
  7. ALPRAZOLAM [Concomitant]
  8. CEFALIUM [Concomitant]
  9. ENDOMETACYN AND CINELOFAZINA [Concomitant]
  10. TETRACYCLINE [Concomitant]

REACTIONS (3)
  - ABORTION [None]
  - DRUG EXPOSURE DURING PREGNANCY [None]
  - PREGNANCY [None]
